FAERS Safety Report 15233201 (Version 1)
Quarter: 2018Q4

REPORT INFORMATION
  Report Type: Spontaneous
  Country: FR (occurrence: FR)
  Receive Date: 20180802
  Receipt Date: 20180802
  Transmission Date: 20190204
  Serious: Yes (Congenital Anomaly, Other)
  Sender: FDA-Public Use
  Company Number: FR-MYLANLABS-2018M1058522

PATIENT
  Age: 24 Week
  Sex: Male
  Weight: .55 kg

DRUGS (3)
  1. RITONAVIR. [Suspect]
     Active Substance: RITONAVIR
     Indication: HIV INFECTION
     Dosage: 1 COURSE
     Route: 064
     Dates: start: 20121019, end: 20130402
  2. REYATAZ [Suspect]
     Active Substance: ATAZANAVIR SULFATE
     Indication: HIV INFECTION
     Dosage: 1 COURSE
     Route: 064
     Dates: start: 20121019, end: 20130402
  3. EMTRICITABINE/TENOFOVIR DISOPROXIL FUMARATE [Suspect]
     Active Substance: EMTRICITABINE\TENOFOVIR DISOPROXIL FUMARATE
     Indication: HIV INFECTION
     Dosage: 1 COURSE
     Route: 064
     Dates: start: 20121019, end: 20130402

REACTIONS (2)
  - Foetal exposure during pregnancy [Recovered/Resolved]
  - Heterotaxia [Unknown]
